FAERS Safety Report 18422826 (Version 1)
Quarter: 2020Q4

REPORT INFORMATION
  Report Type: Report from Study
  Country: IN (occurrence: US)
  Receive Date: 20201023
  Receipt Date: 20201023
  Transmission Date: 20210114
  Serious: No
  Sender: FDA-Public Use
  Company Number: US-LARKEN LABORATORIES, INC.-2093078

PATIENT
  Age: 6 Year
  Sex: Female
  Weight: 14 kg

DRUGS (1)
  1. DOXYCYCLINE HYCLATE TABLET [Suspect]
     Active Substance: DOXYCYCLINE HYCLATE
     Indication: ANTIINFLAMMATORY THERAPY
     Route: 048

REACTIONS (2)
  - Tooth discolouration [Recovered/Resolved]
  - Butterfly rash [Recovered/Resolved]
